FAERS Safety Report 11255695 (Version 1)
Quarter: 2015Q3

REPORT INFORMATION
  Report Type: Spontaneous
  Country: GB (occurrence: GB)
  Receive Date: 20150709
  Receipt Date: 20150709
  Transmission Date: 20151125
  Serious: Yes (Death, Hospitalization)
  Sender: FDA-Public Use
  Company Number: GB-ROCHE-1604778

PATIENT
  Age: 47 Year
  Sex: Female
  Weight: 89 kg

DRUGS (2)
  1. COCODAMOL [Concomitant]
     Active Substance: ACETAMINOPHEN\CODEINE PHOSPHATE
     Route: 065
  2. KADCYLA [Suspect]
     Active Substance: ADO-TRASTUZUMAB EMTANSINE
     Indication: BREAST CANCER METASTATIC
     Dosage: ON 10/JUN/2015, THE PATIENT RECEIVED MOST RECENT DOSE OF TRASTUZUMAB EMTANSINE.
     Route: 042
     Dates: start: 20130605

REACTIONS (3)
  - Epistaxis [Not Recovered/Not Resolved]
  - Cerebral haemorrhage [Fatal]
  - Headache [Not Recovered/Not Resolved]

NARRATIVE: CASE EVENT DATE: 20150614
